FAERS Safety Report 6397576-4 (Version None)
Quarter: 2009Q4

REPORT INFORMATION
  Report Type: 
  Country: None (occurrence: None)
  Receive Date: 20091007
  Receipt Date: 20090924
  Transmission Date: 20100525
  Serious: Yes (Life-Threatening, Hospitalization, Other)
  Sender: FDA-Public Use
  Company Number: JPI-P-008672

PATIENT
  Age: 62 Year
  Sex: Male
  Weight: 108.8633 kg

DRUGS (9)
  1. XYREM [Suspect]
     Indication: CATAPLEXY
     Dosage: 4.5 GM (2.25 GM, 2 IN 1 D), ORAL; 6 GM (3 GM,2 IN 1 D),ORAL
     Route: 048
     Dates: start: 20090909, end: 20090915
  2. XYREM [Suspect]
     Indication: CATAPLEXY
     Dosage: 4.5 GM (2.25 GM, 2 IN 1 D), ORAL; 6 GM (3 GM,2 IN 1 D),ORAL
     Route: 048
     Dates: start: 20090916, end: 20090920
  3. METHYLPHENIDATE HCL [Concomitant]
  4. MODAFINIL [Concomitant]
  5. ASPIRIN [Concomitant]
  6. DULOXETINE HYDROCHLORIDE [Concomitant]
  7. METFORMIN [Concomitant]
  8. PRAVASTATIN [Concomitant]
  9. ALBUTEROL [Concomitant]

REACTIONS (6)
  - CARDIAC ARREST [None]
  - CORONARY ARTERY OCCLUSION [None]
  - HEART RATE IRREGULAR [None]
  - HYPERHIDROSIS [None]
  - PAIN IN JAW [None]
  - TOOTHACHE [None]
